FAERS Safety Report 12942865 (Version 4)
Quarter: 2018Q1

REPORT INFORMATION
  Report Type: Report from Study
  Country: DE (occurrence: DE)
  Receive Date: 20161115
  Receipt Date: 20180220
  Transmission Date: 20180508
  Serious: Yes (Life-Threatening, Hospitalization)
  Sender: FDA-Public Use
  Company Number: DE-JNJFOC-20161112917

PATIENT
  Age: 72 Year
  Sex: Male
  Weight: 100 kg

DRUGS (24)
  1. XARELTO [Suspect]
     Active Substance: RIVAROXABAN
     Indication: CEREBROVASCULAR ACCIDENT PROPHYLAXIS
     Route: 048
     Dates: start: 20160824, end: 20161105
  2. HEPARIN [Concomitant]
     Active Substance: HEPARIN SODIUM
     Route: 065
     Dates: start: 20161110, end: 20161110
  3. HEPARIN [Concomitant]
     Active Substance: HEPARIN SODIUM
     Route: 065
     Dates: start: 20161110, end: 20161110
  4. HEPARIN [Concomitant]
     Active Substance: HEPARIN SODIUM
     Route: 065
     Dates: start: 20161112, end: 20161112
  5. HEPARIN [Concomitant]
     Active Substance: HEPARIN SODIUM
     Route: 065
     Dates: start: 20161113, end: 20161113
  6. HEPARIN [Concomitant]
     Active Substance: HEPARIN SODIUM
     Route: 065
     Dates: start: 20161114, end: 20161114
  7. HEPARIN [Concomitant]
     Active Substance: HEPARIN SODIUM
     Route: 065
     Dates: start: 20161111, end: 20161111
  8. HEPARIN [Concomitant]
     Active Substance: HEPARIN SODIUM
     Route: 065
     Dates: start: 20161113, end: 20161113
  9. GELAFUNDIN [Concomitant]
     Active Substance: CALCIUM CHLORIDE\GELATIN\SODIUM CHLORIDE
     Route: 042
  10. HEPARIN [Concomitant]
     Active Substance: HEPARIN SODIUM
     Route: 065
     Dates: start: 20161110, end: 20161110
  11. HEPARIN [Concomitant]
     Active Substance: HEPARIN SODIUM
     Route: 065
     Dates: start: 20161114, end: 20161114
  12. HEPARIN [Concomitant]
     Active Substance: HEPARIN SODIUM
     Route: 065
     Dates: start: 20161111, end: 20161111
  13. HEPARIN [Concomitant]
     Active Substance: HEPARIN SODIUM
     Route: 065
     Dates: start: 20161112, end: 20161112
  14. HEPARIN [Concomitant]
     Active Substance: HEPARIN SODIUM
     Route: 065
     Dates: start: 20161114, end: 20161114
  15. XARELTO [Suspect]
     Active Substance: RIVAROXABAN
     Indication: ATRIAL FIBRILLATION
     Route: 048
     Dates: start: 20160824, end: 20161105
  16. HEPARIN [Concomitant]
     Active Substance: HEPARIN SODIUM
     Route: 065
     Dates: start: 20161111, end: 20161111
  17. HEPARIN [Concomitant]
     Active Substance: HEPARIN SODIUM
     Route: 065
     Dates: start: 20161110, end: 20161110
  18. HEPARIN [Concomitant]
     Active Substance: HEPARIN SODIUM
     Route: 065
     Dates: start: 20161112, end: 20161112
  19. HEPARIN [Concomitant]
     Active Substance: HEPARIN SODIUM
     Route: 065
     Dates: start: 20161114, end: 20161114
  20. HEPARIN [Concomitant]
     Active Substance: HEPARIN SODIUM
     Route: 065
     Dates: start: 20161114, end: 20161114
  21. HEPARIN [Concomitant]
     Active Substance: HEPARIN SODIUM
     Route: 065
     Dates: start: 20161114, end: 20161114
  22. HEPARIN [Concomitant]
     Active Substance: HEPARIN SODIUM
     Route: 065
     Dates: start: 20161112, end: 20161112
  23. HEPARIN [Concomitant]
     Active Substance: HEPARIN SODIUM
     Route: 065
     Dates: start: 20161113, end: 20161113
  24. HEPARIN [Concomitant]
     Active Substance: HEPARIN SODIUM
     Route: 065
     Dates: start: 20161113, end: 20161113

REACTIONS (11)
  - Cardiac arrest [Not Recovered/Not Resolved]
  - Epistaxis [Not Recovered/Not Resolved]
  - Pelvic fracture [Not Recovered/Not Resolved]
  - Sepsis [Unknown]
  - Cardiovascular disorder [Recovered/Resolved]
  - Fractured sacrum [Not Recovered/Not Resolved]
  - Retroperitoneal haemorrhage [Not Recovered/Not Resolved]
  - Acute kidney injury [Not Recovered/Not Resolved]
  - Fall [Not Recovered/Not Resolved]
  - Pelvic haematoma [Not Recovered/Not Resolved]
  - Bladder injury [Unknown]

NARRATIVE: CASE EVENT DATE: 20161105
